FAERS Safety Report 5682764-2 (Version None)
Quarter: 2008Q1

REPORT INFORMATION
  Report Type: 
  Country: None (occurrence: None)
  Receive Date: 20080327
  Receipt Date: 20080317
  Transmission Date: 20080703
  Serious: Yes (Life-Threatening, Hospitalization)
  Sender: FDA-Public Use
  Company Number: ES-ROCHE-553890

PATIENT
  Age: 79 Year
  Sex: Female

DRUGS (7)
  1. TORSEMIDE [Suspect]
     Indication: HYPERTENSION
     Route: 048
     Dates: start: 20040101
  2. ALDACTONE [Suspect]
     Indication: HYPERTENSION
     Dosage: DRUG NAME: ALDACTONE-100
     Route: 048
     Dates: start: 20040101
  3. IRBESARTAN [Suspect]
     Indication: HYPERTENSION
     Route: 048
     Dates: start: 20040101
  4. AVANDIA [Suspect]
     Route: 048
     Dates: start: 20040101
  5. CARDYL [Suspect]
     Route: 048
     Dates: start: 20040101
  6. NOVONORM [Suspect]
     Route: 048
     Dates: start: 20040101
  7. DIGOXINA LIADE [Suspect]
     Route: 048
     Dates: start: 20040101

REACTIONS (1)
  - PANCREATITIS ACUTE [None]
